FAERS Safety Report 21880436 (Version 1)
Quarter: 2023Q1

REPORT INFORMATION
  Report Type: Spontaneous
  Country: US (occurrence: None)
  Receive Date: 20230117
  Receipt Date: 20230117
  Transmission Date: 20230417
  Serious: Yes (Other)
  Sender: FDA-Public Use
  Company Number: None

PATIENT
  Age: 70 Year
  Sex: Female

DRUGS (1)
  1. HUMIRA [Suspect]
     Active Substance: ADALIMUMAB
     Dosage: FREQUENCY : EVERY OTHER WEEK;?
     Dates: start: 20220307

REACTIONS (3)
  - Fatigue [None]
  - Diarrhoea [None]
  - Therapeutic product effect incomplete [None]

NARRATIVE: CASE EVENT DATE: 20230117
